FAERS Safety Report 4316878-6 (Version None)
Quarter: 2004Q1

REPORT INFORMATION
  Report Type: 
  Country: None (occurrence: None)
  Receive Date: 20040309
  Receipt Date: 20030903
  Transmission Date: 20041129
  Serious: Yes (Life-Threatening)
  Sender: FDA-Public Use
  Company Number: A03200302014

PATIENT
  Age: 51 Year
  Sex: Male

DRUGS (7)
  1. OXALIPLATIN - SOLUTION [Suspect]
     Indication: COLON CANCER
     Dosage: 175 MG Q3W - INTRAVENOUS NOS
     Route: 042
     Dates: start: 20030902, end: 20030902
  2. OXALIPLATIN - SOLUTION [Suspect]
     Indication: METASTASES TO LIVER
     Dosage: 175 MG Q3W - INTRAVENOUS NOS
     Route: 042
     Dates: start: 20030902, end: 20030902
  3. LEUCOVORIN [Concomitant]
  4. FLUOROURACIL [Concomitant]
  5. ONDANSETRON HCL [Concomitant]
  6. LORAZEPAM [Concomitant]
  7. DEXAMETHASONE [Concomitant]

REACTIONS (7)
  - AGITATION [None]
  - ANAPHYLACTIC REACTION [None]
  - COUGH [None]
  - FLUSHING [None]
  - HYPOTENSION [None]
  - PRURITUS [None]
  - TACHYCARDIA [None]
